FAERS Safety Report 6198575-8 (Version None)
Quarter: 2009Q2

REPORT INFORMATION
  Report Type: 
  Country: None (occurrence: None)
  Receive Date: 20090518
  Receipt Date: 20090430
  Transmission Date: 20091009
  Serious: Yes (Other)
  Sender: FDA-Public Use
  Company Number: 2009S1000295

PATIENT
  Age: 62 Year
  Sex: Female
  Weight: 59.8748 kg

DRUGS (11)
  1. PHOSPHOSODA FLAVOR NOT SPECIFIED [Suspect]
     Indication: COLONOSCOPY
     Dosage: PO
     Route: 048
     Dates: start: 20070605, end: 20070605
  2. FOSAMAX [Concomitant]
  3. ETODOLAC [Concomitant]
  4. LEVOXYL [Concomitant]
  5. LIPITOR [Concomitant]
  6. TOPROL-XL [Concomitant]
  7. CALCIUM [Concomitant]
  8. DIOVAN /01319601/ [Concomitant]
  9. MAGNESIUM SULFATE [Concomitant]
  10. KLOR-CON [Concomitant]
  11. GADOLINIUM [Concomitant]

REACTIONS (6)
  - ANAEMIA [None]
  - ESSENTIAL HYPERTENSION [None]
  - NEPHROPATHY TOXIC [None]
  - RENAL FAILURE ACUTE [None]
  - RENAL INJURY [None]
  - TUBULOINTERSTITIAL NEPHRITIS [None]
